FAERS Safety Report 14897617 (Version 2)
Quarter: 2018Q3

REPORT INFORMATION
  Report Type: Spontaneous
  Country: IT (occurrence: IT)
  Receive Date: 20180515
  Receipt Date: 20180720
  Transmission Date: 20181010
  Serious: Yes (Hospitalization)
  Sender: FDA-Public Use
  Company Number: IT-TEVA-2018-IT-891320

PATIENT
  Age: 91 Year
  Sex: Female

DRUGS (7)
  1. QUENTIAX [Concomitant]
     Active Substance: QUETIAPINE FUMARATE
     Route: 065
  2. LORAZEPAM. [Concomitant]
     Active Substance: LORAZEPAM
     Route: 065
  3. TRITTICO [Concomitant]
     Active Substance: TRAZODONE HYDROCHLORIDE
     Route: 065
  4. CLOPIDOGREL [Suspect]
     Active Substance: CLOPIDOGREL BISULFATE
     Indication: MYOCARDIAL ISCHAEMIA
     Dosage: 75 MILLIGRAM DAILY;
     Route: 048
     Dates: start: 20170101, end: 20171122
  5. FLUXUM 4.250 U.I. AXA SOLUZIONE INIETTABILE IN SIRINGA PRERIEMPITA [Suspect]
     Active Substance: PARNAPARIN SODIUM
     Indication: PRODUCT USED FOR UNKNOWN INDICATION
     Route: 058
     Dates: start: 20170101, end: 20171122
  6. DUROGESIC 25 MICROGRAMMI/ORA CEROTTO TRANSDERMICO [Concomitant]
     Active Substance: FENTANYL
     Route: 065
  7. ISOSORBIDE DINITRATE. [Concomitant]
     Active Substance: ISOSORBIDE DINITRATE
     Route: 065

REACTIONS (1)
  - Intestinal haemorrhage [Unknown]

NARRATIVE: CASE EVENT DATE: 20171122
